FAERS Safety Report 13251555 (Version 2)
Quarter: 2019Q4

REPORT INFORMATION
  Report Type: Spontaneous
  Country: US (occurrence: US)
  Receive Date: 20170220
  Receipt Date: 20191018
  Transmission Date: 20200122
  Serious: No
  Sender: FDA-Public Use
  Company Number: US-TEVA-660074USA

PATIENT
  Sex: Female
  Weight: 99.88 kg

DRUGS (1)
  1. PROGESTERONE. [Suspect]
     Active Substance: PROGESTERONE
     Indication: PREGNANCY
     Dosage: TWICE A DAILY VAGINALLY
     Route: 067
     Dates: start: 201604

REACTIONS (6)
  - Arthralgia [Unknown]
  - Product prescribing error [Unknown]
  - Product use in unapproved indication [Unknown]
  - Maternal exposure during pregnancy [Unknown]
  - Back pain [Unknown]
  - Muscle spasms [Unknown]
